FAERS Safety Report 9459977 (Version 1)
Quarter: 2013Q3

REPORT INFORMATION
  Report Type: Spontaneous
  Country: US (occurrence: None)
  Receive Date: 20130813
  Receipt Date: 20130813
  Transmission Date: 20140515
  Serious: No
  Sender: FDA-Public Use
  Company Number: None

PATIENT
  Age: 57 Year
  Sex: Male
  Weight: 97.52 kg

DRUGS (2)
  1. OMEPRAZOLE [Suspect]
     Indication: GASTROOESOPHAGEAL REFLUX DISEASE
     Dosage: 20 MG CAPS 2 TO 3 CAPSULES EVERY DAY BY MOUTH
     Route: 048
     Dates: start: 20120827, end: 20130706
  2. OMEPRAZOLE [Suspect]
     Indication: BARRETT^S OESOPHAGUS
     Dosage: 20 MG CAPS 2 TO 3 CAPSULES EVERY DAY BY MOUTH
     Route: 048
     Dates: start: 20120827, end: 20130706

REACTIONS (3)
  - Muscle spasms [None]
  - Headache [None]
  - Hyperchlorhydria [None]
